FAERS Safety Report 6837345-1 (Version None)
Quarter: 2010Q3

REPORT INFORMATION
  Report Type: 
  Country: None (occurrence: None)
  Receive Date: 20100713
  Receipt Date: 20070509
  Transmission Date: 20110219
  Serious: No
  Sender: FDA-Public Use
  Company Number: US-PFIZER INC-2007038464

PATIENT
  Age: 29 Year
  Sex: Male

DRUGS (2)
  1. CHANTIX [Suspect]
  2. TETRACYCLINE [Suspect]

REACTIONS (2)
  - HEPATIC ENZYME INCREASED [None]
  - RASH [None]
